FAERS Safety Report 5827998-9 (Version None)
Quarter: 2008Q3

REPORT INFORMATION
  Report Type: 
  Country: None (occurrence: None)
  Receive Date: 20080728
  Receipt Date: 20080718
  Transmission Date: 20090109
  Serious: No
  Sender: FDA-Public Use
  Company Number: 20085040

PATIENT
  Sex: Female

DRUGS (1)
  1. LIORESAL [Suspect]
     Indication: MUSCLE SPASTICITY
     Dosage: MCG, DAILY, INTRATHECAL
     Route: 037

REACTIONS (6)
  - DEVICE MIGRATION [None]
  - DISCOMFORT [None]
  - DRUG HYPERSENSITIVITY [None]
  - JOINT SWELLING [None]
  - NO THERAPEUTIC RESPONSE [None]
  - SWELLING [None]
